FAERS Safety Report 18364362 (Version 1)
Quarter: 2020Q4

REPORT INFORMATION
  Report Type: Spontaneous
  Country: US (occurrence: US)
  Receive Date: 20201009
  Receipt Date: 20201009
  Transmission Date: 20210114
  Serious: No
  Sender: FDA-Public Use
  Company Number: US-SA-2020SA279542

PATIENT

DRUGS (22)
  1. COLCHICINE. [Concomitant]
     Active Substance: COLCHICINE
  2. BUPROPION HCL [Concomitant]
     Active Substance: BUPROPION HYDROCHLORIDE
  3. DULOXETINE HCL [Concomitant]
     Active Substance: DULOXETINE HYDROCHLORIDE
  4. ATORVASTATIN CALCIUM. [Concomitant]
     Active Substance: ATORVASTATIN CALCIUM
  5. AMARYL [Concomitant]
     Active Substance: GLIMEPIRIDE
  6. DUPIXENT [Suspect]
     Active Substance: DUPILUMAB
     Indication: DERMATITIS ATOPIC
     Dosage: 1 DF, QOW
     Route: 058
  7. PREGABALIN. [Concomitant]
     Active Substance: PREGABALIN
  8. FERROUS SULFATE. [Concomitant]
     Active Substance: FERROUS SULFATE
  9. FAMOTIDINE. [Concomitant]
     Active Substance: FAMOTIDINE
  10. LISINOPRIL. [Concomitant]
     Active Substance: LISINOPRIL
  11. FUROSEMIDE. [Concomitant]
     Active Substance: FUROSEMIDE
  12. NIACIN. [Concomitant]
     Active Substance: NIACIN
  13. LEVOTHYROXINE SODIUM. [Concomitant]
     Active Substance: LEVOTHYROXINE SODIUM
  14. DICYCLOMINE HCL [Concomitant]
     Active Substance: DICYCLOMINE HYDROCHLORIDE
  15. PIOGLITAZONE HCL [Concomitant]
     Active Substance: PIOGLITAZONE
  16. POTASSIUM [Concomitant]
     Active Substance: POTASSIUM
  17. TRIAMCINOLONE ACETONIDE. [Concomitant]
     Active Substance: TRIAMCINOLONE ACETONIDE
  18. METFORMIN ER [Concomitant]
     Active Substance: METFORMIN HYDROCHLORIDE
  19. DEXTROAMPHETAMINE SULFATE. [Concomitant]
     Active Substance: DEXTROAMPHETAMINE SULFATE
  20. OXAPROZIN. [Concomitant]
     Active Substance: OXAPROZIN
  21. ALLEGRA ALLERGY [Concomitant]
     Active Substance: FEXOFENADINE HYDROCHLORIDE
  22. ALLOPURINOL. [Concomitant]
     Active Substance: ALLOPURINOL

REACTIONS (4)
  - Pruritus [Unknown]
  - Dry skin [Unknown]
  - Skin haemorrhage [Unknown]
  - Eczema [Unknown]

NARRATIVE: CASE EVENT DATE: 2020
